FAERS Safety Report 7626501-0 (Version None)
Quarter: 2011Q3

REPORT INFORMATION
  Report Type: 
  Country: None (occurrence: None)
  Receive Date: 20110721
  Receipt Date: 20110503
  Transmission Date: 20111222
  Serious: No
  Sender: FDA-Public Use
  Company Number: US-NOVEN-11US002402

PATIENT
  Sex: Male

DRUGS (3)
  1. FENTANYL [Suspect]
     Indication: FIBROMYALGIA
     Dosage: 75 UG/HR, Q72H
     Route: 062
     Dates: start: 20110101
  2. MORPHINE [Concomitant]
     Indication: FIBROMYALGIA
     Dosage: 120 MG, TID
     Route: 048
  3. VICODIN [Concomitant]
     Indication: BREAKTHROUGH PAIN
     Dosage: 1 TABLET EVERY 9 HOURS PRN
     Route: 048

REACTIONS (1)
  - INADEQUATE ANALGESIA [None]
